FAERS Safety Report 13946273 (Version 1)
Quarter: 2017Q3

REPORT INFORMATION
  Report Type: Spontaneous
  Country: US (occurrence: US)
  Receive Date: 20170907
  Receipt Date: 20170907
  Transmission Date: 20171128
  Serious: Yes (Hospitalization)
  Sender: FDA-Public Use
  Company Number: US-UNITED THERAPEUTICS-UNT-2017-012751

PATIENT
  Age: 30 Year
  Sex: Female

DRUGS (1)
  1. ORENITRAM [Suspect]
     Active Substance: TREPROSTINIL
     Indication: PRODUCT USED FOR UNKNOWN INDICATION
     Dosage: .25 MG, BID
     Route: 048

REACTIONS (4)
  - Flushing [Unknown]
  - Dizziness [Unknown]
  - Blood pressure decreased [Recovered/Resolved]
  - Intentional overdose [Unknown]
